FAERS Safety Report 19840105 (Version 1)
Quarter: 2021Q3

REPORT INFORMATION
  Report Type: Spontaneous
  Country: US (occurrence: US)
  Receive Date: 20210916
  Receipt Date: 20210916
  Transmission Date: 20211014
  Serious: No
  Sender: FDA-Public Use
  Company Number: US-ALLERGAN-2111296US

PATIENT
  Age: 14 Year
  Sex: Male

DRUGS (1)
  1. VANIQA [Suspect]
     Active Substance: EFLORNITHINE HYDROCHLORIDE
     Indication: ACNE
     Dosage: UNK UNK, SINGLE
     Dates: start: 20210314, end: 20210314

REACTIONS (3)
  - Off label use [Unknown]
  - Product administered at inappropriate site [Unknown]
  - Prescription drug used without a prescription [Unknown]

NARRATIVE: CASE EVENT DATE: 20210314
